FAERS Safety Report 10683988 (Version 1)
Quarter: 2014Q4

REPORT INFORMATION
  Report Type: Spontaneous
  Country: US (occurrence: US)
  Receive Date: 20141230
  Receipt Date: 20141230
  Transmission Date: 20150529
  Serious: No
  Sender: FDA-Public Use
  Company Number: US-BAUSCH-SYM-2014-19001

PATIENT
  Age: 49 Year
  Sex: Female

DRUGS (2)
  1. XENAZINE [Suspect]
     Active Substance: TETRABENAZINE
     Indication: DYSTONIA
     Dosage: 1 TABLET, 3 TIMES DAILY
     Route: 048
     Dates: start: 20140123
  2. XENAZINE [Suspect]
     Active Substance: TETRABENAZINE
     Indication: PERONEAL MUSCULAR ATROPHY

REACTIONS (2)
  - Food poisoning [Unknown]
  - Vomiting [Unknown]

NARRATIVE: CASE EVENT DATE: 20140319
